FAERS Safety Report 18277980 (Version 2)
Quarter: 2020Q3

REPORT INFORMATION
  Report Type: Report from Study
  Country: US (occurrence: US)
  Receive Date: 20200917
  Receipt Date: 20200918
  Transmission Date: 20201103
  Serious: Yes (Other)
  Sender: FDA-Public Use
  Company Number: US-CLOVIS ONCOLOGY-CLO-2020-000687

PATIENT
  Sex: Female

DRUGS (3)
  1. RUBRACA [Suspect]
     Active Substance: RUCAPARIB CAMSYLATE
     Dosage: 400 MG, BID
     Route: 048
     Dates: start: 20200717, end: 20200908
  2. RUBRACA [Suspect]
     Active Substance: RUCAPARIB CAMSYLATE
     Indication: OVARIAN CANCER
     Dosage: 600 MG, BID
     Route: 048
     Dates: start: 20200408, end: 20200429
  3. RUBRACA [Suspect]
     Active Substance: RUCAPARIB CAMSYLATE
     Dosage: 400 MG, BID
     Route: 048
     Dates: start: 20200404

REACTIONS (15)
  - Gait disturbance [Not Recovered/Not Resolved]
  - Fluid retention [Unknown]
  - Fatigue [Recovering/Resolving]
  - Blister [Not Recovered/Not Resolved]
  - Nausea [Not Recovered/Not Resolved]
  - Decreased appetite [Not Recovered/Not Resolved]
  - Ovarian neoplasm [Unknown]
  - Lethargy [Not Recovered/Not Resolved]
  - Dysgeusia [Recovering/Resolving]
  - Somnolence [Recovering/Resolving]
  - Peripheral swelling [Recovering/Resolving]
  - Asthenia [Recovering/Resolving]
  - Dyspnoea [Recovering/Resolving]
  - Malaise [Unknown]
  - Diarrhoea [Recovering/Resolving]

NARRATIVE: CASE EVENT DATE: 2020
